FAERS Safety Report 7140618-9 (Version None)
Quarter: 2010Q4

REPORT INFORMATION
  Report Type: 
  Country: None (occurrence: None)
  Receive Date: 20101207
  Receipt Date: 20091203
  Transmission Date: 20110411
  Serious: Yes (Death, Hospitalization)
  Sender: FDA-Public Use
  Company Number: US-ACTELION-A-US2009-31857

PATIENT

DRUGS (2)
  1. ILOPROST INHALATION SOLUTION UNKNOWN US [Suspect]
     Indication: PULMONARY ARTERIAL HYPERTENSION
     Route: 055
     Dates: start: 20091117
  2. REVATIO [Concomitant]

REACTIONS (4)
  - DEATH [None]
  - DYSPNOEA [None]
  - FLUID RETENTION [None]
  - RIGHT VENTRICULAR FAILURE [None]
